FAERS Safety Report 7204229-9 (Version None)
Quarter: 2010Q4

REPORT INFORMATION
  Report Type: 
  Country: None (occurrence: None)
  Receive Date: 20101230
  Receipt Date: 20101222
  Transmission Date: 20110411
  Serious: Yes (Other)
  Sender: FDA-Public Use
  Company Number: US-ROCHE-745676

PATIENT
  Sex: Female
  Weight: 54.1 kg

DRUGS (2)
  1. BONIVA [Suspect]
     Indication: OSTEOPOROSIS
     Dosage: FORM: INFUSION
     Route: 042
     Dates: start: 20101118, end: 20101118
  2. SYNTHROID [Concomitant]

REACTIONS (6)
  - INJECTION SITE EXTRAVASATION [None]
  - MUSCLE TWITCHING [None]
  - PAIN [None]
  - PARAESTHESIA [None]
  - SWELLING [None]
  - TENDONITIS [None]
